FAERS Safety Report 9235873 (Version 2)
Quarter: 2013Q2

REPORT INFORMATION
  Report Type: Spontaneous
  Country: JP (occurrence: JP)
  Receive Date: 20130417
  Receipt Date: 20130520
  Transmission Date: 20140414
  Serious: Yes (Hospitalization)
  Sender: FDA-Public Use
  Company Number: JP-ASTELLAS-2013JP004906

PATIENT
  Age: 80 Year
  Sex: Female

DRUGS (8)
  1. BETANIS [Suspect]
     Indication: HYPERTONIC BLADDER
     Dosage: 50 MG, UID/QD
     Route: 048
     Dates: start: 20121127
  2. MYSLEE [Concomitant]
     Indication: INSOMNIA
     Dosage: 10 MG, UID/QD
     Route: 048
     Dates: start: 20111108
  3. NEXIUM                             /01479302/ [Concomitant]
     Indication: GASTROOESOPHAGEAL REFLUX DISEASE
     Dosage: 20 MG, UID/QD
     Route: 048
     Dates: start: 20120404
  4. AMLODIPINE                         /00972402/ [Concomitant]
     Indication: HYPERTENSION
     Dosage: 5 MG, UID/QD
     Route: 048
     Dates: start: 19951130
  5. MOHRUS [Concomitant]
     Indication: CERVICOBRACHIAL SYNDROME
     Dosage: 30 MG, UID/QD
     Route: 061
     Dates: start: 20060725
  6. SENNOSIDE                          /00571901/ [Concomitant]
     Indication: CONSTIPATION
     Dosage: 12 MG, UID/QD
     Route: 048
     Dates: start: 19990303
  7. MAGMITT [Concomitant]
     Indication: CONSTIPATION
     Dosage: 500 MG, UID/QD
     Route: 048
     Dates: start: 19990303
  8. PATANOL [Concomitant]
     Indication: CONJUNCTIVITIS ALLERGIC
     Dosage: 1 DROPS, QID
     Route: 047
     Dates: start: 20111108

REACTIONS (1)
  - Myocardial infarction [Recovered/Resolved]
